FAERS Safety Report 10080840 (Version 1)
Quarter: 2014Q2

REPORT INFORMATION
  Report Type: Spontaneous
  Country: US (occurrence: None)
  Receive Date: 20140415
  Receipt Date: 20140415
  Transmission Date: 20141212
  Serious: No
  Sender: FDA-Public Use
  Company Number: None

PATIENT
  Age: 60 Year
  Sex: Female
  Weight: 49.9 kg

DRUGS (1)
  1. ZOLPIDEM ER [Suspect]
     Indication: INSOMNIA
     Dosage: ONE TO TWO DOSES HS PO
     Route: 048
     Dates: start: 20140412

REACTIONS (4)
  - Restlessness [None]
  - Psychomotor hyperactivity [None]
  - Product substitution issue [None]
  - Product quality issue [None]
